FAERS Safety Report 5701856-2 (Version None)
Quarter: 2008Q2

REPORT INFORMATION
  Report Type: 
  Country: None (occurrence: None)
  Receive Date: 20080411
  Receipt Date: 20080408
  Transmission Date: 20081010
  Serious: Yes (Life-Threatening, Hospitalization, Disabling)
  Sender: FDA-Public Use
  Company Number: JP-BRISTOL-MYERS SQUIBB COMPANY-14119630

PATIENT
  Age: 10 Year
  Sex: Male

DRUGS (4)
  1. PARAPLATIN [Suspect]
     Indication: PINEAL GERMINOMA
     Route: 041
     Dates: start: 20040902, end: 20040902
  2. IFOMIDE [Concomitant]
     Indication: PINEAL GERMINOMA
     Route: 042
  3. SOLITA-T NO. 3 [Concomitant]
     Route: 041
  4. MEYLON [Concomitant]
     Route: 042

REACTIONS (3)
  - ATRIOVENTRICULAR BLOCK COMPLETE [None]
  - CEREBRAL INFARCTION [None]
  - PANCREATITIS [None]
